FAERS Safety Report 6682883-8 (Version None)
Quarter: 2010Q2

REPORT INFORMATION
  Report Type: 
  Country: None (occurrence: None)
  Receive Date: 20100415
  Receipt Date: 20100412
  Transmission Date: 20101027
  Serious: Yes (Other)
  Sender: FDA-Public Use
  Company Number: A0854614A

PATIENT
  Age: 70 Year
  Sex: Male

DRUGS (5)
  1. ARIXTRA [Suspect]
     Dosage: 7.5U PER DAY
     Route: 058
     Dates: start: 20081101
  2. SYNTHROID [Concomitant]
  3. FLONASE [Concomitant]
  4. NORVASC [Concomitant]
  5. ZEGERID [Concomitant]

REACTIONS (5)
  - CONFUSIONAL STATE [None]
  - GOUT [None]
  - MEMORY IMPAIRMENT [None]
  - OEDEMA PERIPHERAL [None]
  - PENILE HAEMORRHAGE [None]
